FAERS Safety Report 6877112-6 (Version None)
Quarter: 2010Q3

REPORT INFORMATION
  Report Type: 
  Country: None (occurrence: None)
  Receive Date: 20100727
  Receipt Date: 20100721
  Transmission Date: 20110219
  Serious: Yes (Hospitalization, Other)
  Sender: FDA-Public Use
  Company Number: US-MERCK-1001USA03808

PATIENT
  Age: 10 Year
  Sex: Female
  Weight: 50 kg

DRUGS (18)
  1. FOSAMAX [Suspect]
     Indication: OSTEOSCLEROSIS
     Dosage: 70 MG 1 X WEEK
     Route: 048
     Dates: start: 19981101, end: 19991201
  2. FOSAMAX [Suspect]
     Dosage: 70 MG 1 X WEEK
     Route: 048
     Dates: start: 20081213, end: 20090512
  3. FOSAMAX [Suspect]
     Route: 048
     Dates: start: 20040101, end: 20040101
  4. FOSAMAX [Suspect]
     Route: 048
     Dates: start: 19990601, end: 20000601
  5. FOSAMAX [Suspect]
     Route: 048
     Dates: start: 20010112
  6. FOSAMAX [Suspect]
     Route: 048
     Dates: start: 20010920
  7. FOSAMAX [Suspect]
     Indication: HYPERCALCAEMIA
     Dosage: 70 MG 1 X WEEK
     Route: 048
     Dates: start: 19981101, end: 19991201
  8. FOSAMAX [Suspect]
     Dosage: 70 MG 1 X WEEK
     Route: 048
     Dates: start: 20081213, end: 20090512
  9. FOSAMAX [Suspect]
     Route: 048
     Dates: start: 20040101, end: 20040101
  10. FOSAMAX [Suspect]
     Route: 048
     Dates: start: 19990601, end: 20000601
  11. FOSAMAX [Suspect]
     Route: 048
     Dates: start: 20010112
  12. FOSAMAX [Suspect]
     Route: 048
     Dates: start: 20010920
  13. SYMBICORT [Concomitant]
     Route: 048
     Dates: start: 20080101, end: 20100101
  14. SYNTHROID [Concomitant]
     Route: 048
     Dates: start: 20080101
  15. RITALIN [Concomitant]
     Route: 048
     Dates: start: 20090101
  16. ZOLOFT [Concomitant]
     Route: 048
     Dates: start: 20070101
  17. PRILOSEC [Concomitant]
     Route: 048
     Dates: start: 20070101
  18. PROVIGIL [Concomitant]
     Route: 048
     Dates: start: 20090101

REACTIONS (41)
  - ABDOMINAL PAIN UPPER [None]
  - ARTHRALGIA [None]
  - ARTHROPATHY [None]
  - ASTHMA [None]
  - BLOOD ALKALINE PHOSPHATASE INCREASED [None]
  - BLOOD POTASSIUM DECREASED [None]
  - BONE ATROPHY [None]
  - BONE CYST [None]
  - BONE DENSITY INCREASED [None]
  - BONE DISORDER [None]
  - BONE LESION [None]
  - COLITIS [None]
  - DEPRESSION [None]
  - GALLBLADDER DISORDER [None]
  - GASTRIC ULCER [None]
  - HAEMATOCHEZIA [None]
  - HAEMORRHAGE [None]
  - HEADACHE [None]
  - HYPOAESTHESIA [None]
  - HYPOAESTHESIA FACIAL [None]
  - KNEE DEFORMITY [None]
  - MOUTH ULCERATION [None]
  - MUSCLE SPASMS [None]
  - OFF LABEL USE [None]
  - OSTEONECROSIS OF JAW [None]
  - OSTEOPENIA [None]
  - OSTEOSCLEROSIS [None]
  - OVERDOSE [None]
  - PAIN [None]
  - PAIN IN EXTREMITY [None]
  - PAIN IN JAW [None]
  - PERIORBITAL OEDEMA [None]
  - POSTOPERATIVE FEVER [None]
  - PREMATURE MENOPAUSE [None]
  - RECTAL FISSURE [None]
  - RED BLOOD CELL SEDIMENTATION RATE INCREASED [None]
  - SINUS DISORDER [None]
  - SPINAL COLUMN INJURY [None]
  - SWELLING [None]
  - TOOTH DISORDER [None]
  - VISUAL ACUITY REDUCED [None]
